FAERS Safety Report 25518822 (Version 2)
Quarter: 2025Q3

REPORT INFORMATION
  Report Type: Spontaneous
  Country: US (occurrence: US)
  Receive Date: 20250704
  Receipt Date: 20250718
  Transmission Date: 20251020
  Serious: No
  Sender: ROCHE
  Company Number: US-ROCHE-10000322707

PATIENT
  Age: 63 Year
  Sex: Female

DRUGS (2)
  1. XOLAIR PFS [Suspect]
     Active Substance: OMALIZUMAB
     Indication: Urticaria
     Route: 058
     Dates: start: 202505
  2. XOLAIR PFS [Suspect]
     Active Substance: OMALIZUMAB

REACTIONS (9)
  - Vomiting [Unknown]
  - Nausea [Unknown]
  - Inflammation [Unknown]
  - Pruritus [Unknown]
  - Ocular discomfort [Unknown]
  - Pain [Unknown]
  - Muscle spasms [Unknown]
  - Swelling of eyelid [Unknown]
  - Swelling face [Unknown]
